FAERS Safety Report 19484501 (Version 3)
Quarter: 2021Q3

REPORT INFORMATION
  Report Type: Spontaneous
  Country: US (occurrence: US)
  Receive Date: 20210701
  Receipt Date: 20210713
  Transmission Date: 20211014
  Serious: Yes (Death, Life-Threatening, Hospitalization, Other)
  Sender: FDA-Public Use
  Company Number: US-GILEAD-2021-0538946

PATIENT
  Age: 66 Year
  Sex: Male
  Weight: 77.6 kg

DRUGS (1)
  1. YESCARTA [Suspect]
     Active Substance: AXICABTAGENE CILOLEUCEL
     Indication: DIFFUSE LARGE B-CELL LYMPHOMA RECURRENT
     Dosage: 68 ML, ONCE
     Route: 042
     Dates: start: 20210621, end: 20210621

REACTIONS (4)
  - Cytokine release syndrome [Not Recovered/Not Resolved]
  - Neurotoxicity [Recovering/Resolving]
  - Dyspnoea [Unknown]
  - Cardiac arrest [Fatal]

NARRATIVE: CASE EVENT DATE: 20210628
